FAERS Safety Report 13527132 (Version 1)
Quarter: 2017Q2

REPORT INFORMATION
  Report Type: Spontaneous
  Country: US (occurrence: US)
  Receive Date: 20170509
  Receipt Date: 20170509
  Transmission Date: 20170830
  Serious: Yes (Hospitalization, Other)
  Sender: FDA-Public Use
  Company Number: US-SUNOVION-2017SUN001971

PATIENT
  Age: 62 Year
  Sex: Male

DRUGS (6)
  1. LATUDA [Suspect]
     Active Substance: LURASIDONE HYDROCHLORIDE
     Indication: BIPOLAR DISORDER
     Route: 048
  2. LORAZEPAM. [Concomitant]
     Active Substance: LORAZEPAM
     Dosage: 1 MG, BID
  3. ARIPIPRAZOLE. [Concomitant]
     Active Substance: ARIPIPRAZOLE
     Dosage: 10 MG, QD
  4. LORAZEPAM. [Concomitant]
     Active Substance: LORAZEPAM
     Dosage: 1 MG, QID
  5. LORAZEPAM. [Concomitant]
     Active Substance: LORAZEPAM
     Indication: CATATONIA
     Dosage: 3 MG, QD
  6. VALPROIC ACID. [Concomitant]
     Active Substance: VALPROIC ACID
     Dosage: 1500 MG, QD

REACTIONS (14)
  - Dementia [Unknown]
  - Cognitive disorder [Unknown]
  - Catatonia [Unknown]
  - Aggression [Unknown]
  - Encephalopathy [Unknown]
  - Dementia with Lewy bodies [Unknown]
  - Affective disorder [Unknown]
  - Urinary incontinence [Unknown]
  - Frontotemporal dementia [Unknown]
  - CSF protein increased [Unknown]
  - Drug ineffective [Unknown]
  - Bipolar disorder [Unknown]
  - Cerebral atrophy [Unknown]
  - Hallucination, auditory [Recovered/Resolved]
